FAERS Safety Report 4387996-1 (Version None)
Quarter: 2004Q2

REPORT INFORMATION
  Report Type: 
  Country: None (occurrence: None)
  Receive Date: 20040607
  Receipt Date: 20030925
  Transmission Date: 20050107
  Serious: Yes (Other)
  Sender: FDA-Public Use
  Company Number: 347789

PATIENT
  Age: 43 Year
  Sex: Female

DRUGS (2)
  1. ACCUTANE [Suspect]
     Dosage: ORAL
     Route: 048
     Dates: start: 20020715, end: 20030415
  2. EFFEXOR [Concomitant]

REACTIONS (1)
  - DEPRESSION [None]
